FAERS Safety Report 6976677-3 (Version None)
Quarter: 2010Q3

REPORT INFORMATION
  Report Type: 
  Country: None (occurrence: None)
  Receive Date: 20100910
  Receipt Date: 20100901
  Transmission Date: 20110219
  Serious: Yes (Other)
  Sender: FDA-Public Use
  Company Number: NO-SANOFI-AVENTIS-2010SA052468

PATIENT

DRUGS (1)
  1. TAXOTERE [Suspect]

REACTIONS (3)
  - ABDOMINAL PAIN UPPER [None]
  - OEDEMA [None]
  - SCLERODERMA [None]
